FAERS Safety Report 8633660 (Version 4)
Quarter: 2012Q4

REPORT INFORMATION
  Report Type: Report from Study
  Country: US (occurrence: US)
  Receive Date: 20120625
  Receipt Date: 20120831
  Transmission Date: 20130627
  Serious: Yes (Hospitalization)
  Sender: FDA-Public Use
  Company Number: US-ABBOTT-12P-163-0946565-00

PATIENT
  Age: 60 None
  Sex: Male
  Weight: 86.26 kg

DRUGS (13)
  1. HUMIRA 40 MG/0.8 ML PEN [Suspect]
     Indication: ANKYLOSING SPONDYLITIS
     Route: 058
     Dates: start: 20120220, end: 20120514
  2. METOPROLOL [Concomitant]
     Indication: HYPERTENSION
  3. ZETIA [Concomitant]
     Indication: BLOOD CHOLESTEROL INCREASED
  4. AMLODIPINE [Concomitant]
     Indication: HYPERTENSION
  5. PREDNISONE [Concomitant]
     Indication: ANKYLOSING SPONDYLITIS
  6. PREDNISONE [Concomitant]
  7. ALENDRONATE [Concomitant]
     Indication: PRODUCT USED FOR UNKNOWN INDICATION
  8. ADVIL [Concomitant]
     Indication: PAIN
     Dosage: q 4 hours /PRN
  9. ASPIRIN [Concomitant]
     Indication: PRODUCT USED FOR UNKNOWN INDICATION
  10. MIRTAZAPINE [Concomitant]
     Indication: PRODUCT USED FOR UNKNOWN INDICATION
  11. PLAQUENIL [Concomitant]
     Indication: PRODUCT USED FOR UNKNOWN INDICATION
  12. HYDROXYCHLOROQUINE [Concomitant]
     Indication: PRODUCT USED FOR UNKNOWN INDICATION
  13. COLCHICINE [Concomitant]
     Indication: PRODUCT USED FOR UNKNOWN INDICATION

REACTIONS (10)
  - Hypotension [Recovered/Resolved]
  - Urosepsis [Recovered/Resolved]
  - Renal failure acute [Recovered/Resolved]
  - Urine flow decreased [Recovered/Resolved]
  - Chills [Recovered/Resolved]
  - Septic shock [Recovering/Resolving]
  - Fall [Unknown]
  - Arthritis [Unknown]
  - Nephrolithiasis [Unknown]
  - Diverticulum [Unknown]
